FAERS Safety Report 15139734 (Version 4)
Quarter: 2020Q1

REPORT INFORMATION
  Report Type: Spontaneous
  Country: US (occurrence: US)
  Receive Date: 20180713
  Receipt Date: 20200121
  Transmission Date: 20200409
  Serious: Yes (Other)
  Sender: FDA-Public Use
  Company Number: US-SA-2018SA178605

PATIENT
  Age: 14 Year
  Sex: Female

DRUGS (2)
  1. CEREZYME [Suspect]
     Active Substance: IMIGLUCERASE
     Dosage: 5200 U, QOW
     Route: 041
     Dates: start: 2015
  2. CEREZYME [Suspect]
     Active Substance: IMIGLUCERASE
     Dosage: 5200 U, QOW
     Route: 041
     Dates: start: 20100308

REACTIONS (2)
  - Ear disorder [Unknown]
  - Product dose omission [Unknown]
